FAERS Safety Report 9387804 (Version 2)
Quarter: 2013Q3

REPORT INFORMATION
  Report Type: Spontaneous
  Country: US (occurrence: US)
  Receive Date: 20130708
  Receipt Date: 20130716
  Transmission Date: 20140515
  Serious: Yes (Death, Hospitalization, Other)
  Sender: FDA-Public Use
  Company Number: US-BAXTER-2013BAX022647

PATIENT
  Sex: Female

DRUGS (1)
  1. DIANEAL LOW CALCIUM [Suspect]
     Indication: PERITONEAL DIALYSIS
     Dosage: FIVE YEARS AGO
     Route: 033
     Dates: end: 20130629

REACTIONS (6)
  - Sepsis [Fatal]
  - Parathyroid disorder [Unknown]
  - Condition aggravated [Unknown]
  - Intestinal perforation [Unknown]
  - Calciphylaxis [Recovering/Resolving]
  - Hypotension [Recovering/Resolving]
